FAERS Safety Report 7675745-0 (Version None)
Quarter: 2011Q3

REPORT INFORMATION
  Report Type: 
  Country: None (occurrence: None)
  Receive Date: 20110810
  Receipt Date: 20110627
  Transmission Date: 20111222
  Serious: No
  Sender: FDA-Public Use
  Company Number: US-TYCO HEALTHCARE/MALLINCKRODT-T201101291

PATIENT
  Age: 58 Year
  Sex: Female

DRUGS (7)
  1. PENNSAID [Suspect]
     Indication: NECK PAIN
     Dosage: 10-20 DROPS, QID
     Route: 061
     Dates: start: 20110606
  2. LIPITOR [Concomitant]
  3. PRILOSEC [Concomitant]
  4. MULTI-VITAMINS [Concomitant]
  5. PENNSAID [Suspect]
     Indication: MUSCULOSKELETAL PAIN
  6. SYNTHROID [Concomitant]
  7. CALCIUM CARBONATE [Concomitant]

REACTIONS (2)
  - EYE PAIN [None]
  - INCORRECT ROUTE OF DRUG ADMINISTRATION [None]
